FAERS Safety Report 15556541 (Version 2)
Quarter: 2018Q4

REPORT INFORMATION
  Report Type: Spontaneous
  Country: ZA (occurrence: ZA)
  Receive Date: 20181026
  Receipt Date: 20181108
  Transmission Date: 20190205
  Serious: Yes (Death, Hospitalization)
  Sender: FDA-Public Use
  Company Number: ZA-PFIZER INC-2018436933

PATIENT
  Age: 62 Year
  Sex: Female

DRUGS (6)
  1. ASPAVOR [Suspect]
     Active Substance: ATORVASTATIN
     Dosage: 10 MG, UNK
  2. DISPRIN CARDIOCARE [Suspect]
     Active Substance: ASPIRIN
     Dosage: 100 MG, UNK
  3. LOKIT [Suspect]
     Active Substance: OMEPRAZOLE
     Dosage: 20 MG, UNK
  4. ARYCOR [Suspect]
     Active Substance: AMIODARONE HYDROCHLORIDE
     Dosage: 100 MG, UNK
  5. AMLOC (AMLODIPINE BESILATE) [Suspect]
     Active Substance: AMLODIPINE BESYLATE
     Dosage: 5 MG, UNK
  6. GLUCOPHAGE [Suspect]
     Active Substance: METFORMIN HYDROCHLORIDE
     Dosage: 850 MG, UNK

REACTIONS (1)
  - Pulmonary mass [Fatal]

NARRATIVE: CASE EVENT DATE: 2018
